FAERS Safety Report 21490557 (Version 1)
Quarter: 2022Q4

REPORT INFORMATION
  Report Type: Spontaneous
  Country: US (occurrence: US)
  Receive Date: 20221021
  Receipt Date: 20221021
  Transmission Date: 20230112
  Serious: Yes (Life-Threatening, Hospitalization, Other)
  Sender: FDA-Public Use
  Company Number: US-JNJFOC-20221024503

PATIENT
  Age: 26 Year
  Sex: Male

DRUGS (2)
  1. IMODIUM [Suspect]
     Active Substance: LOPERAMIDE HYDROCHLORIDE
     Indication: Product used for unknown indication
     Dosage: 50-100 TABLETS OF 2MG LOPERAMIDE DAILY FOR SEVERAL MONTHS
     Route: 048
  2. IMODIUM [Suspect]
     Active Substance: LOPERAMIDE HYDROCHLORIDE
     Dosage: 50-100 TABLETS OF 2MG LOPERAMIDE DAILY FOR SEVERAL MONTHS
     Route: 048

REACTIONS (8)
  - Electrocardiogram QT prolonged [Recovering/Resolving]
  - Ventricular fibrillation [Recovering/Resolving]
  - Torsade de pointes [Recovering/Resolving]
  - Stress cardiomyopathy [Recovered/Resolved]
  - Ejection fraction decreased [Recovering/Resolving]
  - Nodal arrhythmia [Recovering/Resolving]
  - Atrioventricular block [Recovering/Resolving]
  - Drug abuse [Recovering/Resolving]
